FAERS Safety Report 6856573-2 (Version None)
Quarter: 2010Q3

REPORT INFORMATION
  Report Type: 
  Country: None (occurrence: None)
  Receive Date: 20100719
  Receipt Date: 20100714
  Transmission Date: 20110219
  Serious: No
  Sender: FDA-Public Use
  Company Number: US-TEVA-241363USA

PATIENT
  Sex: Female

DRUGS (1)
  1. COPAXONE [Suspect]
     Indication: MULTIPLE SCLEROSIS
     Route: 058

REACTIONS (2)
  - INFLUENZA LIKE ILLNESS [None]
  - INJECTION SITE REACTION [None]
